FAERS Safety Report 12676154 (Version 1)
Quarter: 2016Q3

REPORT INFORMATION
  Report Type: Spontaneous
  Country: US (occurrence: US)
  Receive Date: 20160823
  Receipt Date: 20160823
  Transmission Date: 20161109
  Serious: Yes (Death, Hospitalization, Other)
  Sender: FDA-Public Use
  Company Number: PHEH2016US020204

PATIENT
  Age: 56 Year
  Sex: Female
  Weight: 72.57 kg

DRUGS (6)
  1. MORPHINE [Concomitant]
     Active Substance: MORPHINE
     Indication: PRODUCT USED FOR UNKNOWN INDICATION
     Dosage: 15 MG, PRN (HALF TABLET AS NEEDED)
     Route: 065
     Dates: start: 201606
  2. DEXAMETHASONE. [Concomitant]
     Active Substance: DEXAMETHASONE
     Indication: GASTROINTESTINAL DISORDER
     Dosage: 4 MG, BID
     Route: 065
     Dates: start: 20160531
  3. METOCLOPRAMIDE. [Concomitant]
     Active Substance: METOCLOPRAMIDE
     Indication: NAUSEA
     Dosage: 10 MG, PRN (FOR EVERY SIX HOURS FOUR TIMES)
     Route: 065
     Dates: start: 20160604
  4. PALBOCICLIB [Suspect]
     Active Substance: PALBOCICLIB
     Indication: BREAST CANCER METASTATIC
     Dosage: 125 MG, QD
     Route: 065
     Dates: start: 201510, end: 201605
  5. ZOFRAN [Suspect]
     Active Substance: ONDANSETRON HYDROCHLORIDE
     Indication: NAUSEA
     Dosage: UNK
     Route: 065
     Dates: start: 201606
  6. LETROZOLE. [Suspect]
     Active Substance: LETROZOLE
     Indication: BREAST CANCER METASTATIC
     Dosage: 2.5 MG, QD
     Route: 065
     Dates: start: 201510, end: 201605

REACTIONS (12)
  - Malignant neoplasm progression [Unknown]
  - Weight decreased [Unknown]
  - Eating disorder [Unknown]
  - Breast cancer metastatic [Fatal]
  - Weight increased [Unknown]
  - Lung carcinoma cell type unspecified stage IV [Fatal]
  - Deep vein thrombosis [Unknown]
  - Metastases to liver [Unknown]
  - Oedema peripheral [Unknown]
  - Drug ineffective [Unknown]
  - Pulmonary embolism [Fatal]
  - Gastric perforation [Unknown]

NARRATIVE: CASE EVENT DATE: 201606
